FAERS Safety Report 13906068 (Version 1)
Quarter: 2017Q3

REPORT INFORMATION
  Report Type: Spontaneous
  Country: US (occurrence: None)
  Receive Date: 20170825
  Receipt Date: 20170825
  Transmission Date: 20171127
  Serious: No
  Sender: FDA-Public Use
  Company Number: None

PATIENT
  Age: 68 Year
  Sex: Female

DRUGS (7)
  1. ATENOLOL. [Concomitant]
     Active Substance: ATENOLOL
  2. CARBIDOPAL/LEVODOPA ER [Concomitant]
  3. LISINOPRIL/HCTZ [Concomitant]
     Active Substance: HYDROCHLOROTHIAZIDE\LISINOPRIL
  4. ALENDRONATE [Concomitant]
     Active Substance: ALENDRONATE SODIUM
  5. APOKYN [Suspect]
     Active Substance: APOMORPHINE HYDROCHLORIDE
     Indication: PARKINSON^S DISEASE
     Dosage: 0.2ML SQ UP TO 5 TIMES
     Route: 058
     Dates: start: 20161101
  6. RANITIDINE. [Concomitant]
     Active Substance: RANITIDINE
  7. ROPINIROLE. [Concomitant]
     Active Substance: ROPINIROLE

REACTIONS (1)
  - Hallucination, visual [None]

NARRATIVE: CASE EVENT DATE: 20170824
